FAERS Safety Report 6293526-X (Version None)
Quarter: 2009Q3

REPORT INFORMATION
  Report Type: 
  Country: None (occurrence: None)
  Receive Date: 20090729
  Receipt Date: 20090715
  Transmission Date: 20100115
  Serious: Yes (Hospitalization)
  Sender: FDA-Public Use
  Company Number: 1000007543

PATIENT
  Age: 62 Year
  Sex: Male
  Weight: 76 kg

DRUGS (3)
  1. ESCITALOPRAM [Suspect]
     Indication: MAJOR DEPRESSION
     Dates: start: 20090310, end: 20090601
  2. DULOXETINE HYDROCHLORIDE (CAPSULES) [Suspect]
     Indication: MAJOR DEPRESSION
     Dates: start: 20090406, end: 20090525
  3. DULOXETINE HYDROCHLORIDE (CAPSULES) [Suspect]
     Indication: MAJOR DEPRESSION
     Dates: start: 20090528, end: 20090601

REACTIONS (2)
  - KIDNEY INFECTION [None]
  - URINARY RETENTION [None]
